FAERS Safety Report 16439600 (Version 1)
Quarter: 2019Q2

REPORT INFORMATION
  Report Type: Spontaneous
  Country: US (occurrence: US)
  Receive Date: 20190617
  Receipt Date: 20190617
  Transmission Date: 20190711
  Serious: Yes (Other)
  Sender: FDA-Public Use
  Company Number: US-PFIZER INC-2019250245

PATIENT
  Age: 60 Year
  Sex: Female
  Weight: 127 kg

DRUGS (4)
  1. NAPROSYN [Concomitant]
     Active Substance: NAPROXEN
     Dosage: UNK, 1X/DAY
  2. GABAPENTIN. [Suspect]
     Active Substance: GABAPENTIN
     Indication: FIBROMYALGIA
     Dosage: 100 MG, 2X/DAY
     Dates: start: 20190416, end: 2019
  3. NAPROSYN [Concomitant]
     Active Substance: NAPROXEN
     Indication: FIBROMYALGIA
     Dosage: 500 MG, 2X/DAY
  4. GABAPENTIN. [Suspect]
     Active Substance: GABAPENTIN
     Dosage: 100 MG, 4X/DAY
     Dates: start: 2019, end: 20190603

REACTIONS (9)
  - Feeling abnormal [Unknown]
  - Drug ineffective [Unknown]
  - Acute psychosis [Unknown]
  - Off label use [Unknown]
  - Product use in unapproved indication [Unknown]
  - Hallucination, visual [Unknown]
  - Suicidal ideation [Recovering/Resolving]
  - Nightmare [Not Recovered/Not Resolved]
  - Delusion [Not Recovered/Not Resolved]

NARRATIVE: CASE EVENT DATE: 2019
